FAERS Safety Report 8117633-1 (Version None)
Quarter: 2012Q1

REPORT INFORMATION
  Report Type: 
  Country: None (occurrence: None)
  Receive Date: 20120207
  Receipt Date: 20120124
  Transmission Date: 20120608
  Serious: Yes (Other)
  Sender: FDA-Public Use
  Company Number: GB-RANBAXY-2012RR-52317

PATIENT
  Sex: Male

DRUGS (1)
  1. ISOTRETINOIN [Suspect]
     Indication: ACNE
     Dosage: 1 MG/KG/DAY
     Route: 065

REACTIONS (3)
  - CHEILITIS [None]
  - STAPHYLOCOCCAL INFECTION [None]
  - NASAL VESTIBULITIS [None]
